FAERS Safety Report 5777855-1 (Version None)
Quarter: 2008Q2

REPORT INFORMATION
  Report Type: 
  Country: None (occurrence: None)
  Receive Date: 20080618
  Receipt Date: 20080609
  Transmission Date: 20081010
  Serious: Yes (Hospitalization, Other)
  Sender: FDA-Public Use
  Company Number: HQWYE185516JUL04

PATIENT
  Sex: Female

DRUGS (7)
  1. PREMPRO [Suspect]
  2. MEDROXYPROGESTERONE ACETATE [Suspect]
  3. ESTRADERM [Suspect]
  4. PREMPHASE 14/14 [Suspect]
  5. PROVERA [Suspect]
  6. PREMARIN [Suspect]
  7. ESTRACE [Suspect]

REACTIONS (1)
  - CONTRALATERAL BREAST CANCER [None]
